FAERS Safety Report 8219301-4 (Version None)
Quarter: 2012Q1

REPORT INFORMATION
  Report Type: 
  Country: None (occurrence: None)
  Receive Date: 20120319
  Receipt Date: 20120315
  Transmission Date: 20120608
  Serious: No
  Sender: FDA-Public Use
  Company Number: US-TEVA-328609USA

PATIENT
  Sex: Female
  Weight: 55.842 kg

DRUGS (3)
  1. NEURONTIN [Concomitant]
     Indication: NEUROPATHY PERIPHERAL
  2. PAXIL [Concomitant]
     Indication: DEPRESSION
  3. PLAN B ONE-STEP [Suspect]
     Indication: POST COITAL CONTRACEPTION
     Dosage: 1.5 MILLIGRAM;
     Route: 048
     Dates: start: 20120306, end: 20120306

REACTIONS (1)
  - MENSTRUATION IRREGULAR [None]
